FAERS Safety Report 5248019-5 (Version None)
Quarter: 2007Q1

REPORT INFORMATION
  Report Type: 
  Country: None (occurrence: None)
  Receive Date: 20070222
  Receipt Date: 20070214
  Transmission Date: 20070707
  Serious: Yes (Hospitalization)
  Sender: FDA-Public Use
  Company Number: TCI2006A05942

PATIENT
  Age: 8 Decade
  Sex: Male

DRUGS (1)
  1. ACTOS [Suspect]
     Dosage: UNK. PER ORAL
     Route: 048
     Dates: end: 20061209

REACTIONS (2)
  - OEDEMA [None]
  - RENAL FAILURE [None]
